FAERS Safety Report 6248827-8 (Version None)
Quarter: 2009Q2

REPORT INFORMATION
  Report Type: 
  Country: None (occurrence: None)
  Receive Date: 20090629
  Receipt Date: 20090617
  Transmission Date: 20091009
  Serious: No
  Sender: FDA-Public Use
  Company Number: US-ELI_LILLY_AND_COMPANY-US200904005449

PATIENT
  Age: 38 Year
  Sex: Female

DRUGS (7)
  1. CYMBALTA [Suspect]
     Indication: MAJOR DEPRESSION
     Dosage: 60 MG, UNK
     Dates: start: 20081015, end: 20081027
  2. CYMBALTA [Suspect]
     Dosage: 60 MG, UNK
     Dates: start: 20081027, end: 20081110
  3. CYMBALTA [Suspect]
     Dates: start: 20090319
  4. DESVENLAFAXINE [Concomitant]
  5. ABILIFY [Concomitant]
     Indication: MAJOR DEPRESSION
  6. CLONOPIN [Concomitant]
     Indication: ANXIETY
  7. ETHANOL [Concomitant]

REACTIONS (9)
  - ALANINE AMINOTRANSFERASE INCREASED [None]
  - ASPARTATE AMINOTRANSFERASE INCREASED [None]
  - BLOOD ALKALINE PHOSPHATASE INCREASED [None]
  - BLOOD BILIRUBIN INCREASED [None]
  - BLOOD CHOLESTEROL INCREASED [None]
  - BLOOD TRIGLYCERIDES INCREASED [None]
  - JAUNDICE [None]
  - NAUSEA [None]
  - VOMITING [None]
